FAERS Safety Report 9220632 (Version 3)
Quarter: 2013Q4

REPORT INFORMATION
  Report Type: Spontaneous
  Country: US (occurrence: US)
  Receive Date: 20130409
  Receipt Date: 20131119
  Transmission Date: 20140711
  Serious: Yes (Hospitalization)
  Sender: FDA-Public Use
  Company Number: US-BAYER-2013-044782

PATIENT
  Age: 41 Year
  Sex: Female
  Weight: 86.17 kg

DRUGS (7)
  1. YASMIN [Suspect]
     Indication: CONTRACEPTION
     Dosage: UNK
     Route: 048
     Dates: start: 20030330, end: 20050923
  2. TRAZODONE [Concomitant]
     Indication: INSOMNIA
     Dosage: 100 MG, UNK
     Route: 048
  3. MOTRIN [Concomitant]
     Indication: PAIN
     Dosage: 600 MG, Q4HR AS NEEDED
     Route: 048
     Dates: start: 20050816
  4. LASIX [Concomitant]
     Indication: SWELLING
     Dosage: UNK UNK, OW
     Route: 048
  5. POTASSIUM [Concomitant]
     Dosage: UNK UNK, OW
     Route: 048
     Dates: start: 20050816
  6. BUPROPION [Concomitant]
     Dosage: UNK
     Dates: start: 2008, end: 2010
  7. LUNESTA [Concomitant]
     Dosage: UNK
     Dates: start: 2008, end: 2010

REACTIONS (11)
  - Deep vein thrombosis [Recovered/Resolved]
  - Injury [Recovered/Resolved]
  - Emotional distress [None]
  - General physical health deterioration [Recovered/Resolved]
  - Anxiety [None]
  - Anhedonia [None]
  - Pain [None]
  - Pain in extremity [Recovered/Resolved]
  - Muscle spasms [Recovered/Resolved]
  - Local swelling [Recovered/Resolved]
  - Fear [None]
